FAERS Safety Report 12810817 (Version 2)
Quarter: 2016Q4

REPORT INFORMATION
  Report Type: Spontaneous
  Country: US (occurrence: US)
  Receive Date: 20161005
  Receipt Date: 20161107
  Transmission Date: 20170207
  Serious: Yes (Hospitalization, Other)
  Sender: FDA-Public Use
  Company Number: US-009507513-1609USA010376

PATIENT
  Age: 74 Year
  Sex: Female
  Weight: 59.86 kg

DRUGS (10)
  1. DORZOLAMIDE HYDROCHLORIDE (+) TIMOLOL MALEATE [Concomitant]
     Active Substance: DORZOLAMIDE HYDROCHLORIDE\TIMOLOL MALEATE
     Indication: GLAUCOMA
     Dosage: 1 DROP IN RIGHT EYE TWICE A DAY
     Route: 047
     Dates: start: 2006
  2. PRINIVIL [Suspect]
     Active Substance: LISINOPRIL
     Indication: HYPERTENSION
     Dosage: UNK
     Route: 048
     Dates: start: 2014, end: 2015
  3. PREVNAR 13 [Suspect]
     Active Substance: PNEUMOCOCCAL 13-VALENT CONJUGATE VACCINE
     Indication: PROPHYLAXIS
     Dates: start: 20150728
  4. CHOLECALCIFEROL [Concomitant]
     Active Substance: CHOLECALCIFEROL
     Indication: SUPPLEMENTATION THERAPY
     Dosage: 2000 IU PILL ONCE A DAY
     Route: 048
     Dates: start: 1996
  5. ASPIRIN. [Concomitant]
     Active Substance: ASPIRIN
     Indication: ANTICOAGULANT THERAPY
     Dosage: 81MG PILL ONCE A DAY
     Route: 048
     Dates: start: 2014
  6. ATORVASTATIN [Concomitant]
     Active Substance: ATORVASTATIN
     Indication: BLOOD CHOLESTEROL INCREASED
     Dosage: 40MG PILL ONCE A DAY
     Route: 048
     Dates: start: 1996
  7. LEVOTHYROXINE SODIUM. [Concomitant]
     Active Substance: LEVOTHYROXINE SODIUM
     Indication: HYPOTHYROIDISM
     Dosage: 125 MCG PILL ONCE A DAY
     Route: 048
     Dates: start: 1981
  8. ZIOPTAN [Concomitant]
     Active Substance: TAFLUPROST
     Indication: GLAUCOMA
     Dosage: 1 DROP IN EACH EYE AT BED TIME
     Route: 047
     Dates: start: 201503
  9. SERTRALINE HYDROCHLORIDE. [Concomitant]
     Active Substance: SERTRALINE HYDROCHLORIDE
     Indication: DEPRESSION
     Dosage: 75MG PILL ONCE A DAY
     Route: 048
     Dates: start: 1996, end: 201605
  10. SIMBRINZA [Concomitant]
     Active Substance: BRIMONIDINE TARTRATE\BRINZOLAMIDE
     Indication: GLAUCOMA
     Dosage: 1 DROP IN LEFT EYE THREE TIMES A DAY
     Route: 047
     Dates: start: 2014

REACTIONS (5)
  - Cough [Recovered/Resolved]
  - Vomiting [Unknown]
  - Pneumonia pneumococcal [Recovered/Resolved]
  - Sinusitis [Unknown]
  - Laryngitis [Not Recovered/Not Resolved]

NARRATIVE: CASE EVENT DATE: 20150804
